FAERS Safety Report 7207946-X (Version None)
Quarter: 2010Q4

REPORT INFORMATION
  Report Type: 
  Country: None (occurrence: None)
  Receive Date: 20101222
  Receipt Date: 20101214
  Transmission Date: 20110411
  Serious: Yes (Death, Hospitalization)
  Sender: FDA-Public Use
  Company Number: UTC-003326

PATIENT
  Age: 76 Year
  Sex: Male
  Weight: 77.1 kg

DRUGS (3)
  1. TYVASO [Suspect]
     Indication: PULMONARY ARTERIAL HYPERTENSION
     Dosage: 216 MCG (54 MCG, 4 IN 1 D), INHALATION
     Route: 055
     Dates: start: 20100901
  2. ADCIRCA [Concomitant]
  3. TRACLEER [Concomitant]

REACTIONS (3)
  - ASCITES [None]
  - DYSPNOEA [None]
  - OEDEMA [None]
